FAERS Safety Report 9012914 (Version 1)
Quarter: 2013Q1

REPORT INFORMATION
  Report Type: Report from Study
  Country: NL (occurrence: NL)
  Receive Date: 20130114
  Receipt Date: 20130114
  Transmission Date: 20140127
  Serious: Yes (Hospitalization)
  Sender: FDA-Public Use
  Company Number: NL-ABBOTT-12P-114-1022028-00

PATIENT
  Age: 0 Year
  Sex: Male
  Weight: 3.65 kg

DRUGS (1)
  1. SYNAGIS [Suspect]
     Indication: PREMATURE BABY
     Dosage: BODY WEIGHT
     Route: 051

REACTIONS (3)
  - Diarrhoea [Recovered/Resolved]
  - Infantile spitting up [Recovered/Resolved]
  - Haemoglobin decreased [Not Recovered/Not Resolved]
